FAERS Safety Report 5559007-3 (Version None)
Quarter: 2007Q4

REPORT INFORMATION
  Report Type: 
  Country: None (occurrence: None)
  Receive Date: 20071214
  Receipt Date: 20070912
  Transmission Date: 20080405
  Serious: No
  Sender: FDA-Public Use
  Company Number: US-ABBOTT-07P-163-0417001-00

PATIENT
  Sex: Male
  Weight: 81.72 kg

DRUGS (5)
  1. HUMIRA [Suspect]
     Indication: CROHN'S DISEASE
     Route: 058
     Dates: start: 20070813
  2. VALPROATE SODIUM [Concomitant]
     Indication: CONVULSION
     Route: 048
  3. VALPROATE SODIUM [Concomitant]
     Indication: BIPOLAR DISORDER
  4. BOTOX [Concomitant]
     Indication: DYSTONIA
     Route: 058
  5. MORPHINE [Concomitant]
     Indication: PAIN

REACTIONS (4)
  - ANAEMIA [None]
  - CONTUSION [None]
  - FEELING ABNORMAL [None]
  - INJECTION SITE PRURITUS [None]
